FAERS Safety Report 13726955 (Version 2)
Quarter: 2017Q3

REPORT INFORMATION
  Report Type: Spontaneous
  Country: IL (occurrence: IL)
  Receive Date: 20170707
  Receipt Date: 20170809
  Transmission Date: 20171127
  Serious: Yes (Hospitalization, Other)
  Sender: FDA-Public Use
  Company Number: IL-009507513-1706ISR011581

PATIENT
  Age: 58 Year
  Sex: Female

DRUGS (1)
  1. KEYTRUDA [Suspect]
     Active Substance: PEMBROLIZUMAB
     Indication: SQUAMOUS CELL CARCINOMA OF HEAD AND NECK
     Dosage: UNK

REACTIONS (5)
  - Angiogram [Unknown]
  - Stent malfunction [Unknown]
  - Carotid artery stent insertion [Unknown]
  - Carotid artery stent removal [Unknown]
  - Neck injury [Unknown]

NARRATIVE: CASE EVENT DATE: 201601
